FAERS Safety Report 6643201-4 (Version None)
Quarter: 2010Q1

REPORT INFORMATION
  Report Type: 
  Country: None (occurrence: None)
  Receive Date: 20100319
  Receipt Date: 20100316
  Transmission Date: 20100710
  Serious: Yes (Death, Hospitalization)
  Sender: FDA-Public Use
  Company Number: PHHY2010ES11471

PATIENT
  Age: 67 Year
  Sex: Male

DRUGS (1)
  1. AFINITOR [Suspect]
     Indication: NEUROENDOCRINE TUMOUR
     Dosage: 10 MG, UNK
     Route: 048

REACTIONS (4)
  - ENDOCARDITIS [None]
  - LUNG INFILTRATION [None]
  - NEOPLASM PROGRESSION [None]
  - NEUROENDOCRINE TUMOUR [None]
